FAERS Safety Report 4661649-4 (Version None)
Quarter: 2005Q2

REPORT INFORMATION
  Report Type: 
  Country: None (occurrence: None)
  Receive Date: 20050511
  Receipt Date: 20050511
  Transmission Date: 20051028
  Serious: Yes (Hospitalization)
  Sender: FDA-Public Use
  Company Number: None

PATIENT
  Age: 53 Year
  Sex: Male

DRUGS (4)
  1. NPH INSULIN [Suspect]
     Indication: DIABETES MELLITUS
     Dosage: 48 U IN AN 14 U IN PM
     Dates: start: 20010921
  2. METFORMIN [Suspect]
     Indication: DIABETES MELLITUS
     Dosage: 1000 MG BID
     Dates: start: 20010921
  3. HYDROXYZINE [Concomitant]
  4. LEVOTHYROXINE SODIUM [Concomitant]

REACTIONS (1)
  - HYPOGLYCAEMIA [None]
